FAERS Safety Report 6047893-2 (Version None)
Quarter: 2009Q1

REPORT INFORMATION
  Report Type: 
  Country: None (occurrence: None)
  Receive Date: 20090121
  Receipt Date: 20090121
  Transmission Date: 20090719
  Serious: No
  Sender: FDA-Public Use
  Company Number: None

PATIENT
  Age: 49 Year
  Sex: Male
  Weight: 70.76 kg

DRUGS (2)
  1. NAPROXEN [Suspect]
     Indication: INFLAMMATION
     Dosage: 500 MG EVERY DAY PO
     Route: 048
     Dates: start: 20080812, end: 20090120
  2. NAPROXEN [Suspect]
     Indication: PAIN
     Dosage: 500 MG EVERY DAY PO
     Route: 048
     Dates: start: 20080812, end: 20090120

REACTIONS (2)
  - ANGINA PECTORIS [None]
  - CHEST DISCOMFORT [None]
